FAERS Safety Report 23440926 (Version 2)
Quarter: 2024Q1

REPORT INFORMATION
  Report Type: Spontaneous
  Country: CA (occurrence: CA)
  Receive Date: 20240125
  Receipt Date: 20240205
  Transmission Date: 20240410
  Serious: Yes (Other)
  Sender: FDA-Public Use
  Company Number: CA-CELLTRION INC.-2024CA001606

PATIENT

DRUGS (4)
  1. INFLECTRA [Suspect]
     Active Substance: INFLIXIMAB-DYYB
     Indication: Rheumatoid arthritis
     Dosage: 300 MG, EVERY 8 WEEK
     Route: 042
     Dates: start: 20220420, end: 20230120
  2. INFLECTRA [Suspect]
     Active Substance: INFLIXIMAB-DYYB
     Dosage: 300 MG, EVERY 12 WEEK
     Route: 042
     Dates: start: 20230517
  3. INFLECTRA [Suspect]
     Active Substance: INFLIXIMAB-DYYB
     Dosage: 300 MG, EVERY 12 WEEK
     Route: 042
     Dates: start: 20240102
  4. METHOTREXATE [Concomitant]
     Active Substance: METHOTREXATE
     Dosage: 1 DF, DOSE/FREQ NOT KNOWN
     Route: 065

REACTIONS (4)
  - Knee arthroplasty [Not Recovered/Not Resolved]
  - Movement disorder [Unknown]
  - Loss of personal independence in daily activities [Unknown]
  - Dizziness [Not Recovered/Not Resolved]
